FAERS Safety Report 14259638 (Version 2)
Quarter: 2018Q1

REPORT INFORMATION
  Report Type: Spontaneous
  Country: US (occurrence: US)
  Receive Date: 20171207
  Receipt Date: 20180103
  Transmission Date: 20180508
  Serious: Yes (Death, Hospitalization, Other)
  Sender: FDA-Public Use
  Company Number: US-009507513-1711USA013017

PATIENT
  Age: 57 Year
  Sex: Male
  Weight: 93.8 kg

DRUGS (2)
  1. SANDOSTATIN [Concomitant]
     Active Substance: OCTREOTIDE ACETATE
  2. INTRON A [Suspect]
     Active Substance: INTERFERON ALFA-2B
     Indication: PRODUCT USED FOR UNKNOWN INDICATION
     Dosage: STRENGTH: 5MU/0.5ML 25MU; 0.5 ML, THREE TIMES WEEKLY
     Route: 058
     Dates: start: 20170220

REACTIONS (2)
  - Death [Fatal]
  - Cardiac operation [Unknown]

NARRATIVE: CASE EVENT DATE: 20171112
